FAERS Safety Report 7961020-3 (Version None)
Quarter: 2011Q4

REPORT INFORMATION
  Report Type: 
  Country: None (occurrence: None)
  Receive Date: 20111207
  Receipt Date: 20111130
  Transmission Date: 20120403
  Serious: No
  Sender: FDA-Public Use
  Company Number: US-PFIZER INC-2011293446

PATIENT
  Sex: Female
  Weight: 84.807 kg

DRUGS (1)
  1. TOVIAZ [Suspect]
     Indication: HYPERTONIC BLADDER
     Dosage: 4 MG, UNK
     Dates: start: 20110101, end: 20111125

REACTIONS (3)
  - DEPRESSION [None]
  - DYSPHONIA [None]
  - OROPHARYNGEAL PAIN [None]
